FAERS Safety Report 9133814 (Version 1)
Quarter: 2013Q1

REPORT INFORMATION
  Report Type: Spontaneous
  Country: US (occurrence: US)
  Receive Date: 20130303
  Receipt Date: 20130303
  Transmission Date: 20140127
  Serious: No
  Sender: FDA-Public Use
  Company Number: US-ENDO PHARMACEUTICALS INC.-VANT20110042

PATIENT
  Age: 76 Year
  Sex: Male

DRUGS (2)
  1. VANTAS [Suspect]
     Indication: PRODUCT USED FOR UNKNOWN INDICATION
     Route: 058
     Dates: start: 20110525, end: 20110531
  2. CALTRATE WITH VITAMIN D [Concomitant]
     Indication: PRODUCT USED FOR UNKNOWN INDICATION
     Dosage: 1200 MG /800 I.U.
     Route: 048

REACTIONS (6)
  - Post procedural infection [Unknown]
  - Micturition urgency [Unknown]
  - Stress urinary incontinence [Unknown]
  - Device extrusion [Recovered/Resolved]
  - Erythema [Unknown]
  - Swelling [Unknown]
